FAERS Safety Report 8905348 (Version 1)
Quarter: 2012Q4

REPORT INFORMATION
  Report Type: 
  Country: US (occurrence: US)
  Receive Date: 20121111
  Receipt Date: 20121111
  Transmission Date: 20130627
  Serious: No
  Sender: FDA-Public Use
  Company Number: US-009507513-1211USA000492

PATIENT
  Sex: Female

DRUGS (3)
  1. NUVARING [Suspect]
     Indication: CONTRACEPTION
     Dosage: 1 DF, qm
     Route: 067
     Dates: end: 20121017
  2. EFFEXOR [Concomitant]
  3. VALIUM [Concomitant]

REACTIONS (2)
  - Unintended pregnancy [Unknown]
  - No adverse event [Unknown]
